FAERS Safety Report 7887509-3 (Version None)
Quarter: 2011Q4

REPORT INFORMATION
  Report Type: 
  Country: None (occurrence: None)
  Receive Date: 20111103
  Receipt Date: 20111026
  Transmission Date: 20120403
  Serious: Yes (Hospitalization, Other)
  Sender: FDA-Public Use
  Company Number: US-BIOGENIDEC-2011BI033829

PATIENT
  Age: 56 Year
  Sex: Male

DRUGS (3)
  1. TYSABRI [Suspect]
     Route: 042
     Dates: start: 20081016, end: 20090317
  2. BACLOFEN [Concomitant]
  3. TYSABRI [Suspect]
     Indication: MULTIPLE SCLEROSIS
     Route: 042
     Dates: start: 20110627, end: 20110726

REACTIONS (4)
  - HYPERCALCAEMIA [None]
  - DRUG DELIVERY DEVICE IMPLANTATION [None]
  - GENERAL SYMPTOM [None]
  - URINARY TRACT INFECTION [None]
